FAERS Safety Report 15775494 (Version 1)
Quarter: 2018Q4

REPORT INFORMATION
  Report Type: Spontaneous
  Country: ES (occurrence: ES)
  Receive Date: 20181231
  Receipt Date: 20181231
  Transmission Date: 20190205
  Serious: Yes (Hospitalization)
  Sender: FDA-Public Use
  Company Number: ES-SUN PHARMACEUTICAL INDUSTRIES LTD-2018RR-194914

PATIENT
  Age: 95 Year
  Sex: Female

DRUGS (5)
  1. CITALOPRAM [Suspect]
     Active Substance: CITALOPRAM HYDROBROMIDE
     Indication: PRODUCT USED FOR UNKNOWN INDICATION
     Dosage: 20 MG DIA
     Route: 048
     Dates: start: 20170920, end: 20180214
  2. OMEPRAZOL (2141A) [Concomitant]
     Active Substance: OMEPRAZOLE
     Indication: PRODUCT USED FOR UNKNOWN INDICATION
     Dosage: UNK, (20 MG DIA)
     Route: 048
     Dates: start: 20180113
  3. SINTROM [Interacting]
     Active Substance: ACENOCOUMAROL
     Indication: PRODUCT USED FOR UNKNOWN INDICATION
     Dosage: UNK, (SP)
     Route: 048
     Dates: start: 20161031, end: 20180214
  4. TRAMADOL / PARACETAMOL MYLAN 37,5 MG/325 MG COMPRIMIDOS RECUBIERTOS... [Concomitant]
     Indication: PRODUCT USED FOR UNKNOWN INDICATION
     Dosage: UNK, (1-1-1)
     Route: 048
     Dates: start: 20180113
  5. FERPLEX 40 MG SOLUCION ORAL, 20 VIALES BEBIBLES DE 15 ML [Concomitant]
     Indication: PRODUCT USED FOR UNKNOWN INDICATION
     Dosage: UNK, (1 VIAL DIA)
     Route: 048
     Dates: start: 20180113

REACTIONS (3)
  - Hypocoagulable state [Recovered/Resolved]
  - Anaemia [Recovered/Resolved]
  - Lower gastrointestinal haemorrhage [Recovered/Resolved]

NARRATIVE: CASE EVENT DATE: 20180220
